FAERS Safety Report 10018174 (Version 2)
Quarter: 2014Q1

REPORT INFORMATION
  Report Type: Spontaneous
  Country: US (occurrence: US)
  Receive Date: 20140318
  Receipt Date: 20140318
  Transmission Date: 20141002
  Serious: No
  Sender: FDA-Public Use
  Company Number: US-BRISTOL-MYERS SQUIBB COMPANY-19143585

PATIENT
  Age: 89 Year
  Sex: Female

DRUGS (1)
  1. ERBITUX [Suspect]
     Indication: METASTATIC NEOPLASM
     Dosage: 200MG:LOT:C1200252,EXP:OCT2015?100MGVIAL:LOT:C1200039,EXP:FEB2015

REACTIONS (2)
  - Blood magnesium decreased [Unknown]
  - Blood potassium decreased [Unknown]
